FAERS Safety Report 9722617 (Version 1)
Quarter: 2013Q4

REPORT INFORMATION
  Report Type: Spontaneous
  Country: US (occurrence: None)
  Receive Date: 20131127
  Receipt Date: 20131127
  Transmission Date: 20140711
  Serious: No
  Sender: FDA-Public Use
  Company Number: None

PATIENT
  Age: 77 Year
  Sex: Male

DRUGS (2)
  1. GENGRAF [Suspect]
     Route: 048
     Dates: start: 20130208
  2. RAPAMUNE [Suspect]
     Route: 048
     Dates: start: 20130208

REACTIONS (2)
  - Chills [None]
  - Skin cancer [None]
